FAERS Safety Report 21462339 (Version 1)
Quarter: 2022Q4

REPORT INFORMATION
  Report Type: Other
  Country: MX (occurrence: None)
  Receive Date: 20221016
  Receipt Date: 20221016
  Transmission Date: 20230112
  Serious: Yes (Other)
  Sender: FDA-Public Use
  Company Number: MX-ROCHE-3198867

PATIENT
  Sex: Female
  Weight: 68 kg

DRUGS (1)
  1. OCREVUS [Suspect]
     Active Substance: OCRELIZUMAB
     Indication: Multiple sclerosis
     Route: 042
     Dates: start: 20211115

REACTIONS (2)
  - Brain injury [Not Recovered/Not Resolved]
  - Spinal column injury [Not Recovered/Not Resolved]
